FAERS Safety Report 6941918-5 (Version None)
Quarter: 2010Q3

REPORT INFORMATION
  Report Type: 
  Country: None (occurrence: None)
  Receive Date: 20100826
  Receipt Date: 20100816
  Transmission Date: 20110219
  Serious: Yes (Other)
  Sender: FDA-Public Use
  Company Number: US-JNJFOC-20100806225

PATIENT
  Sex: Female
  Weight: 92.53 kg

DRUGS (12)
  1. FENTANYL CITRATE [Suspect]
     Indication: BACK PAIN
     Route: 062
  2. FENTANYL CITRATE [Suspect]
     Indication: BACK PAIN
     Route: 062
  3. METOCLOPRAMIDE [Concomitant]
     Indication: GASTRIC DISORDER
     Route: 048
  4. CRESTOR [Concomitant]
     Indication: BLOOD CHOLESTEROL ABNORMAL
     Route: 048
  5. NORCO [Concomitant]
     Indication: PAIN
     Dosage: 10MG/3.25MG-5MG DAILY
     Route: 048
  6. KLONOPIN [Concomitant]
     Indication: NEUROPATHY PERIPHERAL
     Route: 048
  7. XANAX [Concomitant]
     Indication: NEUROPATHY PERIPHERAL
     Route: 048
  8. POTASSIUM [Concomitant]
     Indication: MEDICAL DIET
     Route: 048
  9. GABAPENTIN [Concomitant]
     Route: 048
  10. ALLEGRA [Concomitant]
     Indication: SEASONAL ALLERGY
     Route: 048
  11. FLOVENT [Concomitant]
     Indication: MULTIPLE ALLERGIES
     Route: 055
  12. COMBIVENT [Concomitant]
     Indication: MULTIPLE ALLERGIES
     Route: 055

REACTIONS (5)
  - CARDIAC DISORDER [None]
  - NERVOUS SYSTEM DISORDER [None]
  - POLYP [None]
  - PRODUCT ADHESION ISSUE [None]
  - WRONG TECHNIQUE IN DRUG USAGE PROCESS [None]
